FAERS Safety Report 16349320 (Version 2)
Quarter: 2019Q3

REPORT INFORMATION
  Report Type: Report from Study
  Country: US (occurrence: US)
  Receive Date: 20190523
  Receipt Date: 20190703
  Transmission Date: 20191004
  Serious: Yes (Other)
  Sender: FDA-Public Use
  Company Number: US-ADAMAS PHARMA, LLC-2019ADA01108

PATIENT
  Age: 40 Year
  Sex: Female
  Weight: 86 kg

DRUGS (4)
  1. EXCEDRIN FOR MIGRAINE [Concomitant]
     Indication: MIGRAINE
     Dosage: 2 DOSAGE UNITS, AS NEEDED
     Route: 048
     Dates: start: 1985
  2. TYSABRI [Concomitant]
     Active Substance: NATALIZUMAB
     Indication: RELAPSING-REMITTING MULTIPLE SCLEROSIS
     Dosage: 300 MG EVERY 28 DAYS
     Route: 042
     Dates: start: 200812
  3. ADS-5102 [Suspect]
     Active Substance: AMANTADINE
     Indication: GAIT DISTURBANCE
     Dosage: UNK UNK, 1X/DAY
     Route: 048
     Dates: start: 20180821, end: 20190501
  4. VITAMIN D3 [Concomitant]
     Active Substance: CHOLECALCIFEROL
     Indication: VITAMIN D DEFICIENCY
     Dosage: 5000 IU, 1X/DAY
     Route: 048
     Dates: start: 2010

REACTIONS (1)
  - Generalised tonic-clonic seizure [Recovered/Resolved]

NARRATIVE: CASE EVENT DATE: 20190430
